FAERS Safety Report 7390190-3 (Version None)
Quarter: 2011Q2

REPORT INFORMATION
  Report Type: 
  Country: None (occurrence: None)
  Receive Date: 20110401
  Receipt Date: 20110322
  Transmission Date: 20111010
  Serious: Yes (Hospitalization)
  Sender: FDA-Public Use
  Company Number: ES-ELI_LILLY_AND_COMPANY-ES201103006778

PATIENT
  Sex: Female
  Weight: 70 kg

DRUGS (13)
  1. ALLOPURINOL [Concomitant]
     Dosage: 300 MG, QD
  2. FORTEO [Suspect]
     Indication: OSTEOPOROSIS
     Dosage: 20 UG, QD
     Route: 058
     Dates: start: 20090301
  3. LEVOTHROID [Concomitant]
     Indication: THYROID DISORDER
     Dosage: 25 MG, QD
     Route: 048
  4. PARACETAMOL [Concomitant]
     Indication: PAIN
     Dosage: UNK, PRN
     Route: 048
  5. CAOSINA [Concomitant]
     Dosage: UNK
     Route: 048
  6. ROCALTROL [Concomitant]
     Dosage: 1 DF, QD
     Route: 048
  7. OMEPRAZOLE [Concomitant]
     Indication: GASTRIC DISORDER
     Dosage: 20 MG, QD
     Route: 048
  8. ARANESP [Concomitant]
     Dosage: 100 MG, QD
     Route: 048
  9. LANTUS [Concomitant]
     Indication: DIABETES MELLITUS
     Dosage: UNK
     Route: 058
  10. PREDNISONE [Concomitant]
     Dosage: 10 MG, QD
     Route: 048
  11. SEGURIL [Concomitant]
     Indication: OEDEMA
     Dosage: 40 MG, BID
     Route: 048
  12. HIDROSALURETIL [Concomitant]
     Indication: OSTEOPOROSIS
     Dosage: 1 DF, QD
     Route: 048
  13. TACROLIMUS [Concomitant]
     Indication: RENAL TRANSPLANT
     Dosage: 3 MG, QD
     Route: 048

REACTIONS (2)
  - MALAISE [None]
  - OEDEMA PERIPHERAL [None]
